FAERS Safety Report 9963009 (Version 2)
Quarter: 2014Q1

REPORT INFORMATION
  Report Type: Spontaneous
  Country: US (occurrence: US)
  Receive Date: 20140305
  Receipt Date: 20140305
  Transmission Date: 20141002
  Serious: No
  Sender: FDA-Public Use
  Company Number: US-TARO-2013P1018818

PATIENT
  Age: 63 Year
  Sex: Female
  Weight: 76.66 kg

DRUGS (1)
  1. NYSTATIN CREAM USP 100,000 UNITS/G [Suspect]
     Indication: FUNGAL INFECTION
     Route: 061
     Dates: start: 20130820

REACTIONS (1)
  - Feeling abnormal [Recovering/Resolving]
